FAERS Safety Report 5181343-3 (Version None)
Quarter: 2006Q4

REPORT INFORMATION
  Report Type: 
  Country: None (occurrence: None)
  Receive Date: 20061220
  Receipt Date: 20051220
  Transmission Date: 20070319
  Serious: No
  Sender: FDA-Public Use
  Company Number: US-GLAXOSMITHKLINE-A0586428A

PATIENT
  Age: 60 Year
  Sex: Female

DRUGS (2)
  1. COMMIT [Suspect]
     Dates: start: 20051115, end: 20051115
  2. EQUATE NTS 21MG [Suspect]

REACTIONS (8)
  - APPLICATION SITE ERYTHEMA [None]
  - APPLICATION SITE PRURITUS [None]
  - APPLICATION SITE REACTION [None]
  - APPLICATION SITE URTICARIA [None]
  - HYPERSENSITIVITY [None]
  - INCREASED UPPER AIRWAY SECRETION [None]
  - ORAL PRURITUS [None]
  - THROAT IRRITATION [None]
